FAERS Safety Report 9105866 (Version 1)
Quarter: 2013Q1

REPORT INFORMATION
  Report Type: Spontaneous
  Country: DE (occurrence: DE)
  Receive Date: 20130220
  Receipt Date: 20130220
  Transmission Date: 20140127
  Serious: Yes (Death, Hospitalization)
  Sender: FDA-Public Use
  Company Number: DE-JNJFOC-20130114989

PATIENT
  Age: 73 Year
  Sex: Male

DRUGS (11)
  1. XARELTO [Suspect]
     Indication: CEREBROVASCULAR ACCIDENT PROPHYLAXIS
     Route: 048
     Dates: start: 201210
  2. XARELTO [Suspect]
     Indication: ATRIAL FIBRILLATION
     Route: 048
     Dates: start: 201210
  3. SPIRONOLACTONE [Concomitant]
     Route: 065
  4. ENALAPRIL [Concomitant]
     Route: 065
  5. OMEPRAZOLE [Concomitant]
     Route: 065
  6. METOPROLOL [Concomitant]
     Route: 065
  7. DIGITOXIN [Concomitant]
     Route: 065
  8. TOREM [Concomitant]
     Route: 065
  9. METFORMIN [Concomitant]
     Route: 065
  10. LANTUS [Concomitant]
     Route: 065
  11. PREDNISOLONE [Concomitant]
     Route: 065

REACTIONS (2)
  - Cerebral haemorrhage [Fatal]
  - General physical health deterioration [Fatal]
